FAERS Safety Report 10174059 (Version 1)
Quarter: 2014Q2

REPORT INFORMATION
  Report Type: Spontaneous
  Country: GB (occurrence: GB)
  Receive Date: 20140515
  Receipt Date: 20140515
  Transmission Date: 20141212
  Serious: Yes (Other)
  Sender: FDA-Public Use
  Company Number: PHHY2014GB057129

PATIENT
  Age: 85 Year
  Sex: Male
  Weight: 86 kg

DRUGS (5)
  1. ATORVASTATIN [Suspect]
     Indication: HYPERCHOLESTEROLAEMIA
     Dosage: 40 MG
     Route: 048
     Dates: start: 20130717, end: 20130911
  2. ASPIRIN [Concomitant]
     Dosage: 75 MG
  3. ATENOLOL [Concomitant]
     Dosage: 25 MG
  4. METFORMIN HYDROCHLORIDE [Concomitant]
     Dosage: 500 MG
  5. TELMISARTAN [Concomitant]
     Dosage: 40 MG

REACTIONS (3)
  - Dry mouth [Unknown]
  - Balance disorder [Unknown]
  - Muscular weakness [Recovering/Resolving]
